FAERS Safety Report 16985575 (Version 1)
Quarter: 2019Q4

REPORT INFORMATION
  Report Type: Report from Study
  Country: US (occurrence: US)
  Receive Date: 20191101
  Receipt Date: 20191101
  Transmission Date: 20200122
  Serious: Yes (Hospitalization)
  Sender: FDA-Public Use
  Company Number: US-JNJFOC-20190235651

PATIENT
  Sex: Male

DRUGS (7)
  1. IMBRUVICA [Suspect]
     Active Substance: IBRUTINIB
     Route: 048
     Dates: start: 20180328
  2. CENTRUM [Concomitant]
     Active Substance: VITAMINS
  3. RITUXAN [Concomitant]
     Active Substance: RITUXIMAB
  4. AMLODIPINE BESYLATE. [Concomitant]
     Active Substance: AMLODIPINE BESYLATE
  5. MONTELUKAST SODIUM. [Concomitant]
     Active Substance: MONTELUKAST SODIUM
  6. IMBRUVICA [Suspect]
     Active Substance: IBRUTINIB
     Indication: B-CELL LYMPHOMA
     Route: 048
     Dates: start: 20180329
  7. NOCDURNA [Concomitant]
     Active Substance: DESMOPRESSIN ACETATE

REACTIONS (8)
  - Hospitalisation [Unknown]
  - Weight decreased [Unknown]
  - Diarrhoea [Unknown]
  - Eye contusion [Unknown]
  - Fatigue [Unknown]
  - Contusion [Unknown]
  - Platelet count decreased [Unknown]
  - Dehydration [Unknown]
